FAERS Safety Report 9847018 (Version 1)
Quarter: 2014Q1

REPORT INFORMATION
  Report Type: Spontaneous
  Country: FR (occurrence: FR)
  Receive Date: 20140127
  Receipt Date: 20140127
  Transmission Date: 20141002
  Serious: Yes (Hospitalization)
  Sender: FDA-Public Use
  Company Number: FR-US-EMD SERONO, INC.-7264169

PATIENT
  Age: 37 Year
  Sex: Female

DRUGS (4)
  1. CETROTIDE (CETRORELIX ACETATE FOR INJECTION) [Suspect]
     Indication: IN VITRO FERTILISATION
     Route: 058
     Dates: start: 20130522, end: 20130531
  2. MENOPUR /01277604/ [Suspect]
     Indication: IN VITRO FERTILISATION
     Route: 058
     Dates: start: 20130522, end: 20130531
  3. GONADOTROPHINE-ENDO [Suspect]
     Indication: IN VITRO FERTILISATION
     Route: 030
     Dates: start: 20130601
  4. UTROGESTAN [Suspect]
     Indication: IN VITRO FERTILISATION
     Route: 067
     Dates: start: 20130603

REACTIONS (2)
  - Ovarian hyperstimulation syndrome [Recovered/Resolved]
  - Ascites [Recovered/Resolved]
